FAERS Safety Report 17362179 (Version 1)
Quarter: 2020Q1

REPORT INFORMATION
  Report Type: Spontaneous
  Country: CA (occurrence: CA)
  Receive Date: 20200203
  Receipt Date: 20200203
  Transmission Date: 20200409
  Serious: Yes (Hospitalization)
  Sender: FDA-Public Use
  Company Number: CA-PFIZER INC-2020040990

PATIENT
  Age: 58 Year
  Sex: Female

DRUGS (6)
  1. MINT DULOXETINE [Concomitant]
     Indication: DEPRESSION
     Dosage: 120 MG, 1X/DAY
  2. MINT DULOXETINE [Concomitant]
     Indication: ANXIETY
  3. LEUCOVORIN CALCIUM. [Suspect]
     Active Substance: LEUCOVORIN CALCIUM
     Dosage: 30 MG, ONCE WEEKLY
  4. METHOTREXATE SODIUM. [Suspect]
     Active Substance: METHOTREXATE SODIUM
     Dosage: 25 MG, ONCE WEEKLY
  5. BUDESONIDE. [Suspect]
     Active Substance: BUDESONIDE
     Dosage: 6 MG, 1X/DAY
  6. UMECLIDINIUM BROMIDE [Suspect]
     Active Substance: UMECLIDINIUM BROMIDE
     Indication: PRODUCTIVE COUGH
     Dosage: 62.5 MG, 1X/DAY

REACTIONS (2)
  - Drug ineffective [Unknown]
  - Condition aggravated [Unknown]
